FAERS Safety Report 5138612-2 (Version None)
Quarter: 2006Q4

REPORT INFORMATION
  Report Type: 
  Country: None (occurrence: None)
  Receive Date: 20061030
  Receipt Date: 20060725
  Transmission Date: 20070319
  Serious: Yes (Other)
  Sender: FDA-Public Use
  Company Number: J200602494

PATIENT
  Age: 73 Year
  Sex: Female

DRUGS (6)
  1. SAWACILLIN [Suspect]
     Indication: GASTRIC ULCER
     Dosage: 750MG TWICE PER DAY
     Route: 048
     Dates: start: 20060701, end: 20060707
  2. CLARITHROMYCIN [Suspect]
     Indication: GASTRIC ULCER
     Dosage: 200MG TWICE PER DAY
     Route: 048
     Dates: start: 20060701, end: 20060707
  3. LANSOPRAZOLE [Suspect]
     Indication: GASTRIC ULCER
     Dosage: 30MG TWICE PER DAY
     Route: 048
     Dates: start: 20060701, end: 20060707
  4. BETAMETHASONE SODIUM PHOSPHATE [Suspect]
     Dosage: 1TAB FOUR TIMES PER DAY
     Route: 048
     Dates: start: 20060701
  5. FAMOTIDINE [Concomitant]
     Dosage: 1TAB TWICE PER DAY
     Route: 048
     Dates: start: 20060701
  6. ALLEGRA [Concomitant]
     Route: 048
     Dates: start: 20060701

REACTIONS (3)
  - BLOOD PRESSURE INCREASED [None]
  - RASH [None]
  - TOXIC SKIN ERUPTION [None]
